FAERS Safety Report 8327022-2 (Version None)
Quarter: 2012Q2

REPORT INFORMATION
  Report Type: 
  Country: None (occurrence: None)
  Receive Date: 20120501
  Receipt Date: 20120430
  Transmission Date: 20120825
  Serious: Yes (Other)
  Sender: FDA-Public Use
  Company Number: US-PFIZER INC-2012103460

PATIENT
  Sex: Female
  Weight: 54.422 kg

DRUGS (3)
  1. CHANTIX [Suspect]
     Indication: SMOKING CESSATION THERAPY
     Dosage: UNK
     Route: 048
     Dates: start: 20120101, end: 20120101
  2. CHANTIX [Suspect]
     Dosage: 1 MG, 1X/DAY
     Route: 048
     Dates: start: 20120101, end: 20120408
  3. WARFARIN [Concomitant]
     Dosage: UNK

REACTIONS (2)
  - FEELING ABNORMAL [None]
  - BLOOD PRESSURE INCREASED [None]
